FAERS Safety Report 11839596 (Version 2)
Quarter: 2016Q1

REPORT INFORMATION
  Report Type: Report from Study
  Country: US (occurrence: US)
  Receive Date: 20151216
  Receipt Date: 20160212
  Transmission Date: 20160525
  Serious: Yes (Hospitalization)
  Sender: FDA-Public Use
  Company Number: US-ROCHE-1675853

PATIENT
  Age: 39 Year
  Sex: Female
  Weight: 65.06 kg

DRUGS (15)
  1. LIDOCAINE. [Concomitant]
     Active Substance: LIDOCAINE
     Dosage: 6 DAYS
     Route: 065
  2. ZOLOFT [Concomitant]
     Active Substance: SERTRALINE HYDROCHLORIDE
     Dosage: 3.5 YEARS
     Route: 065
  3. PERTUZUMAB [Suspect]
     Active Substance: PERTUZUMAB
     Indication: HER-2 POSITIVE BREAST CANCER
     Route: 042
     Dates: start: 20151119
  4. ERIBULIN [Suspect]
     Active Substance: ERIBULIN
     Indication: HER-2 POSITIVE BREAST CANCER
     Dosage: CYCLE 1 DAY 8 (C1D8) DOSE
     Route: 042
  5. OXYCODONE [Concomitant]
     Active Substance: OXYCODONE
     Dosage: 4 WEEKS
     Route: 065
  6. PEPCID [Concomitant]
     Active Substance: FAMOTIDINE
     Dosage: 10 WEEKS
     Route: 065
  7. LUPRON [Concomitant]
     Active Substance: LEUPROLIDE ACETATE
     Dosage: 10WEEKS
     Route: 065
  8. PERTUZUMAB [Suspect]
     Active Substance: PERTUZUMAB
     Route: 042
     Dates: end: 20160121
  9. RITALIN [Concomitant]
     Active Substance: METHYLPHENIDATE HYDROCHLORIDE
     Dosage: 7 MONTHS
     Route: 065
  10. TRASTUZUMAB [Suspect]
     Active Substance: TRASTUZUMAB
     Route: 042
     Dates: end: 20160121
  11. ZOMIG [Concomitant]
     Active Substance: ZOLMITRIPTAN
     Dosage: 2.5+ YEARS
     Route: 065
  12. TRASTUZUMAB [Suspect]
     Active Substance: TRASTUZUMAB
     Indication: HER-2 POSITIVE BREAST CANCER
     Route: 042
     Dates: start: 20151119
  13. WELLBUTRIN XL [Concomitant]
     Active Substance: BUPROPION HYDROCHLORIDE
     Dosage: 2.5 YEARS
     Route: 065
  14. LOMOTIL (UNITED STATES) [Concomitant]
     Dosage: 15 DAYS
     Route: 065
  15. ATIVAN [Concomitant]
     Active Substance: LORAZEPAM
     Dosage: 1.5 YEARS
     Route: 065

REACTIONS (11)
  - Aspartate aminotransferase increased [Recovered/Resolved]
  - Dehydration [Not Recovered/Not Resolved]
  - Hypokalaemia [Recovered/Resolved]
  - Mucosal inflammation [Not Recovered/Not Resolved]
  - Anaemia [Recovered/Resolved]
  - Anaemia [Not Recovered/Not Resolved]
  - Diarrhoea [Recovered/Resolved]
  - Abdominal pain [Recovered/Resolved]
  - Alanine aminotransferase increased [Recovered/Resolved]
  - Hypokalaemia [Recovered/Resolved]
  - Neutropenia [Recovered/Resolved]

NARRATIVE: CASE EVENT DATE: 20151130
